FAERS Safety Report 5063833-7 (Version None)
Quarter: 2006Q3

REPORT INFORMATION
  Report Type: 
  Country: None (occurrence: None)
  Receive Date: 20060703
  Receipt Date: 20051103
  Transmission Date: 20061208
  Serious: Yes (Hospitalization)
  Sender: FDA-Public Use
  Company Number: 2005S1010890

PATIENT
  Age: 29 Year
  Sex: Male

DRUGS (7)
  1. CLOZAPINE [Suspect]
     Indication: BIPOLAR DISORDER
     Dosage: SEE IMAGE
     Route: 048
     Dates: start: 20050714
  2. CLOZAPINE [Suspect]
     Indication: SCHIZOAFFECTIVE DISORDER
     Dosage: SEE IMAGE
     Route: 048
     Dates: start: 20050714
  3. TRILEPTAL [Suspect]
     Dosage: 1200 MG;BID;ORAL
     Route: 048
  4. LITHIUM CARBONATE [Concomitant]
  5. CLONAZEPAM [Concomitant]
  6. FOLIC ACID [Concomitant]
  7. ARIPIPRAZOLE [Concomitant]

REACTIONS (6)
  - CONVULSION [None]
  - DRUG INTERACTION [None]
  - HYPERKINESIA [None]
  - LETHARGY [None]
  - MYOCLONUS [None]
  - TREMOR [None]
